FAERS Safety Report 4434045-2 (Version None)
Quarter: 2004Q3

REPORT INFORMATION
  Report Type: 
  Country: None (occurrence: None)
  Receive Date: 20040825
  Receipt Date: 20040810
  Transmission Date: 20050211
  Serious: Yes (Death, Hospitalization)
  Sender: FDA-Public Use
  Company Number: EWC040840208

PATIENT
  Age: 52 Year
  Sex: Female

DRUGS (3)
  1. XIGRIS [Suspect]
     Indication: SEPSIS
     Dosage: 24 UG/KG/HR
     Dates: start: 20040626, end: 20040630
  2. NORADRENALINE [Concomitant]
  3. DOBUTAMIN (DOBUTAMINE HYDROCHLORIDE) [Concomitant]

REACTIONS (5)
  - BRAIN OEDEMA [None]
  - CONDITION AGGRAVATED [None]
  - HYPOXIA [None]
  - MYDRIASIS [None]
  - SUBARACHNOID HAEMORRHAGE [None]
